FAERS Safety Report 18665980 (Version 1)
Quarter: 2020Q4

REPORT INFORMATION
  Report Type: Spontaneous
  Country: GB (occurrence: GB)
  Receive Date: 20201226
  Receipt Date: 20201226
  Transmission Date: 20210114
  Serious: Yes (Other)
  Sender: FDA-Public Use
  Company Number: GB-TEVA-2020-GB-1861664

PATIENT
  Age: 20 Year
  Sex: Female
  Weight: 46 kg

DRUGS (6)
  1. PEPPERMINT OIL [Concomitant]
     Active Substance: PEPPERMINT OIL
  2. IBUPROFEN. [Concomitant]
     Active Substance: IBUPROFEN
  3. PARACETAMOL [Concomitant]
     Active Substance: ACETAMINOPHEN
  4. FEXOFENADINE [Suspect]
     Active Substance: FEXOFENADINE HYDROCHLORIDE
     Indication: HYPERSENSITIVITY
     Dosage: 120 MG
     Route: 048
     Dates: start: 20201126, end: 20201128
  5. CITALOPRAM [Concomitant]
     Active Substance: CITALOPRAM HYDROBROMIDE
  6. RIGEVIDON [Concomitant]

REACTIONS (2)
  - Tachycardia [Unknown]
  - Nausea [Unknown]
